FAERS Safety Report 4685477-9 (Version None)
Quarter: 2005Q2

REPORT INFORMATION
  Report Type: 
  Country: None (occurrence: None)
  Receive Date: 20050608
  Receipt Date: 20050527
  Transmission Date: 20051028
  Serious: Yes (Disabling)
  Sender: FDA-Public Use
  Company Number: PHBS2005CH07515

PATIENT
  Age: 60 Year
  Sex: Female

DRUGS (1)
  1. ZOMETA [Suspect]
     Indication: OSTEOPOROSIS
     Dosage: 4 MG, QMO
     Route: 042
     Dates: start: 20031201

REACTIONS (17)
  - ASEPTIC NECROSIS BONE [None]
  - BONE DISORDER [None]
  - FIBROSIS [None]
  - FISTULA [None]
  - GENERAL ANAESTHESIA [None]
  - IMPAIRED HEALING [None]
  - INFECTION [None]
  - MASS [None]
  - NASAL DISORDER [None]
  - OEDEMA MUCOSAL [None]
  - ORAL MUCOSAL ERUPTION [None]
  - PRIMARY SEQUESTRUM [None]
  - SECRETION DISCHARGE [None]
  - SINUSITIS [None]
  - STOMATITIS [None]
  - TOOTH DISORDER [None]
  - WOUND DEBRIDEMENT [None]
